FAERS Safety Report 11876198 (Version 1)
Quarter: 2015Q4

REPORT INFORMATION
  Report Type: Spontaneous
  Country: BR (occurrence: BR)
  Receive Date: 20151229
  Receipt Date: 20151229
  Transmission Date: 20160305
  Serious: Yes (Other)
  Sender: FDA-Public Use
  Company Number: BR-JNJFOC-20151222237

PATIENT
  Age: 55 Year
  Sex: Female

DRUGS (1)
  1. STELARA [Suspect]
     Active Substance: USTEKINUMAB
     Indication: PSORIASIS
     Route: 058
     Dates: start: 20130324

REACTIONS (4)
  - Fungal infection [Unknown]
  - Osteoporosis [Unknown]
  - Drug ineffective [Unknown]
  - Nail psoriasis [Unknown]

NARRATIVE: CASE EVENT DATE: 201507
